FAERS Safety Report 9463126 (Version 10)
Quarter: 2017Q3

REPORT INFORMATION
  Report Type: Report from Study
  Country: NL (occurrence: NL)
  Receive Date: 20130816
  Receipt Date: 20170907
  Transmission Date: 20171128
  Serious: Yes (Other)
  Sender: FDA-Public Use
  Company Number: PHHY2013NL078125

PATIENT
  Age: 54 Year
  Sex: Male

DRUGS (5)
  1. SIGNIFOR [Suspect]
     Active Substance: PASIREOTIDE
     Indication: PITUITARY-DEPENDENT CUSHING^S SYNDROME
     Dosage: 0.6 MG, BID
     Route: 058
     Dates: start: 20130307, end: 20130308
  2. VALSARTAN + HCT [Concomitant]
     Active Substance: HYDROCHLOROTHIAZIDE\VALSARTAN
     Indication: PRODUCT USED FOR UNKNOWN INDICATION
     Dosage: 1 DF, QD
     Route: 065
  3. SIGNIFOR [Suspect]
     Active Substance: PASIREOTIDE
     Dosage: 0.6 MG, BID
     Route: 058
     Dates: start: 20130328, end: 20130523
  4. SIGNIFOR [Suspect]
     Active Substance: PASIREOTIDE
     Dosage: 0.3 MG, QD
     Route: 058
     Dates: start: 20130312, end: 20130319
  5. SIGNIFOR [Suspect]
     Active Substance: PASIREOTIDE
     Dosage: 0.3 MG, QD
     Route: 058
     Dates: start: 20130320, end: 20130327

REACTIONS (8)
  - Blood glucose increased [Recovered/Resolved]
  - Dizziness [Unknown]
  - Diabetes mellitus inadequate control [Recovered/Resolved]
  - Paraesthesia [Unknown]
  - Dyspnoea [Unknown]
  - Abdominal pain [Unknown]
  - Diarrhoea [Recovered/Resolved]
  - Fatigue [Recovered/Resolved]

NARRATIVE: CASE EVENT DATE: 20130308
